FAERS Safety Report 9292818 (Version 2)
Quarter: 2013Q2

REPORT INFORMATION
  Report Type: Report from Study
  Country: IL (occurrence: IL)
  Receive Date: 20130516
  Receipt Date: 20130520
  Transmission Date: 20140414
  Serious: Yes (Hospitalization)
  Sender: FDA-Public Use
  Company Number: IL-BAXTER-2013BAX016182

PATIENT
  Age: 76 Year
  Sex: Female
  Weight: 76 kg

DRUGS (11)
  1. ENDOXAN-1G [Suspect]
     Indication: CHRONIC LYMPHOCYTIC LEUKAEMIA
     Route: 042
     Dates: start: 20130312
  2. ENDOXAN-1G [Suspect]
     Route: 042
     Dates: start: 20130410
  3. RITUXIMAB [Suspect]
     Indication: CHRONIC LYMPHOCYTIC LEUKAEMIA
     Dosage: 700-900 MG
     Route: 042
     Dates: start: 20130311
  4. RITUXIMAB [Suspect]
     Dosage: 700-900 MG
     Route: 042
     Dates: start: 20130408
  5. FLUDARABINE PHOSPHATE [Suspect]
     Indication: CHRONIC LYMPHOCYTIC LEUKAEMIA
     Dosage: 22 MG-22.8 MG
     Route: 042
     Dates: start: 20130312
  6. FLUDARABINE PHOSPHATE [Suspect]
     Dosage: 22MG-22.8MG
     Route: 042
     Dates: start: 20130410
  7. FAMOTIDINE [Concomitant]
     Indication: PRODUCT USED FOR UNKNOWN INDICATION
     Route: 065
  8. ASPIRIN [Concomitant]
     Indication: PRODUCT USED FOR UNKNOWN INDICATION
     Route: 065
  9. CALCIUM DOBESILATE [Concomitant]
     Indication: PRODUCT USED FOR UNKNOWN INDICATION
     Route: 065
  10. SIMVASTATIN [Concomitant]
     Indication: PRODUCT USED FOR UNKNOWN INDICATION
     Route: 065
  11. RAMIPRIL [Concomitant]
     Indication: PRODUCT USED FOR UNKNOWN INDICATION
     Route: 065

REACTIONS (1)
  - Viral infection [Not Recovered/Not Resolved]
